FAERS Safety Report 9649069 (Version 2)
Quarter: 2013Q4

REPORT INFORMATION
  Report Type: Spontaneous
  Country: US (occurrence: US)
  Receive Date: 20131028
  Receipt Date: 20131030
  Transmission Date: 20140711
  Serious: Yes (Hospitalization, Other)
  Sender: FDA-Public Use
  Company Number: CHPA2013US016040

PATIENT
  Age: 92 Year
  Sex: Female

DRUGS (10)
  1. VOLTAREN GEL [Suspect]
     Indication: PAIN
     Dosage: A LITTLE DAB, 1-2 TIMES DAILY
     Route: 061
  2. VOLTAREN GEL [Suspect]
     Indication: OFF LABEL USE
  3. PEPTO BISMOL                       /03966801/ [Concomitant]
     Indication: GASTRITIS
     Dosage: UNK, UNK
     Route: 048
  4. BABY ASPIRIN [Concomitant]
     Dosage: UNK, QD
     Route: 048
  5. ALPRAZOLAM [Concomitant]
     Indication: ANXIETY
     Dosage: 0.5 MG, UNK
     Route: 065
  6. TYLENOL [Concomitant]
     Dosage: 1-2 PILLS, QD
     Route: 065
     Dates: start: 2010
  7. TYLENOL [Concomitant]
     Dosage: 1-6 PILLS, QD
     Route: 065
  8. WATER PILLS [Concomitant]
     Dosage: UNK, UNK
  9. MULTIVITAMIN AND MINERAL SUPPLEMENT [Concomitant]
     Dosage: UNK, UNK
  10. BIOFREEZE                          /01638601/ [Concomitant]
     Dosage: UNK, UNK

REACTIONS (5)
  - Gastritis [Recovering/Resolving]
  - Chest pain [Recovered/Resolved]
  - Weight decreased [Not Recovered/Not Resolved]
  - Drug administered at inappropriate site [Unknown]
  - Drug ineffective for unapproved indication [Unknown]
